FAERS Safety Report 9269111 (Version 2)
Quarter: 2013Q2

REPORT INFORMATION
  Report Type: Spontaneous
  Country: US (occurrence: US)
  Receive Date: 20130503
  Receipt Date: 20130523
  Transmission Date: 20140414
  Serious: No
  Sender: FDA-Public Use
  Company Number: US-009507513-1305USA000620

PATIENT
  Sex: 0

DRUGS (1)
  1. SINGULAIR [Suspect]
     Dosage: UNK
     Route: 048
     Dates: start: 201202

REACTIONS (2)
  - Eosinophilic fasciitis [Unknown]
  - Influenza like illness [Unknown]
